FAERS Safety Report 9502752 (Version 1)
Quarter: 2013Q1

REPORT INFORMATION
  Report Type: Spontaneous
  Country: US (occurrence: None)
  Receive Date: 20130225
  Receipt Date: 20130225
  Transmission Date: 20140127
  Serious: Yes (Other)
  Sender: FDA-Public Use
  Company Number: 365248

PATIENT
  Age: 58 Year
  Sex: Female
  Weight: 107.9 kg

DRUGS (5)
  1. VICTOZA [Suspect]
     Indication: TYPE 2 DIABETES MELLITUS
     Route: 058
     Dates: start: 20120702, end: 20121006
  2. DILTIAZEM [Concomitant]
  3. LOSARTAN (LOSARTAN) [Concomitant]
  4. METOPROLOL (METOPROLOL) [Concomitant]
  5. PRAVASTATIN (PRAVASTATIN) [Concomitant]

REACTIONS (1)
  - Pancreatitis [None]
